FAERS Safety Report 8158638-4 (Version None)
Quarter: 2012Q1

REPORT INFORMATION
  Report Type: 
  Country: None (occurrence: None)
  Receive Date: 20120217
  Receipt Date: 20120202
  Transmission Date: 20120608
  Serious: Yes (Other)
  Sender: FDA-Public Use
  Company Number: IPC201201-000022

PATIENT
  Age: 64 Year
  Sex: Male

DRUGS (13)
  1. ALLOPURINOL [Suspect]
     Dosage: 100 MG, TWO TIMES DAILY
  2. LORAZEPAM [Suspect]
  3. POTASSIUM CITRATE [Suspect]
  4. AZITHROMYCIN [Suspect]
  5. AMLODIPINE [Suspect]
  6. TAMSULOSIN HCL [Suspect]
  7. FERROUS SULFATE TAB [Suspect]
  8. FUROSEMIDE [Suspect]
  9. DOCUSATE [Suspect]
  10. CALCIUM [Suspect]
  11. HYDROXYUREA [Suspect]
  12. CALCITRIOL [Suspect]
  13. LANSOPRAZOLE [Suspect]

REACTIONS (2)
  - RENAL IMPAIRMENT [None]
  - INTERSTITIAL GRANULOMATOUS DERMATITIS [None]
